FAERS Safety Report 20475379 (Version 1)
Quarter: 2022Q1

REPORT INFORMATION
  Report Type: Spontaneous
  Country: US (occurrence: US)
  Receive Date: 20220215
  Receipt Date: 20220215
  Transmission Date: 20220423
  Serious: No
  Sender: FDA-Public Use
  Company Number: US-GSKCCFUS-Case-01294954_AE-75453

PATIENT
  Sex: Female

DRUGS (1)
  1. VALTREX [Suspect]
     Active Substance: VALACYCLOVIR HYDROCHLORIDE
     Indication: Product used for unknown indication
     Dosage: 500 MG, QD
     Route: 048
     Dates: start: 2021

REACTIONS (3)
  - Lymphadenopathy [Not Recovered/Not Resolved]
  - Feeling cold [Not Recovered/Not Resolved]
  - Fatigue [Not Recovered/Not Resolved]
